FAERS Safety Report 8500894-4 (Version None)
Quarter: 2012Q3

REPORT INFORMATION
  Report Type: 
  Country: None (occurrence: None)
  Receive Date: 20120710
  Receipt Date: 20120626
  Transmission Date: 20120928
  Serious: Yes (Other)
  Sender: FDA-Public Use
  Company Number: PHEH2012US013245

PATIENT
  Sex: Female

DRUGS (8)
  1. TORSEMIDE [Concomitant]
     Dosage: 10 MG, HALF ONE DAY
  2. POTASSIUM CHLORIDE [Concomitant]
     Indication: SUPPLEMENTATION THERAPY
     Dosage: 10 MG, QD
  3. CARDURA [Concomitant]
     Indication: BLOOD PRESSURE
     Dosage: 1 MG, QD
  4. CARVEDILOL [Concomitant]
     Indication: BLOOD PRESSURE
     Dosage: 3.125 MG, BID
  5. ALPRAZOLAM [Concomitant]
     Indication: ANXIETY
     Dosage: 0.25 MG, HALF ONE DAY
  6. VALTURNA [Suspect]
     Dosage: 1 DF, UNK
     Dates: start: 20090101
  7. ASPIRIN [Concomitant]
     Indication: CARDIAC DISORDER
     Dosage: 81 MG, QD
     Route: 048
  8. CLONIDINE [Concomitant]
     Indication: BLOOD PRESSURE
     Dosage: 1 MG, QD

REACTIONS (4)
  - FALL [None]
  - DIZZINESS [None]
  - SYNCOPE [None]
  - ANKLE FRACTURE [None]
